FAERS Safety Report 25342442 (Version 1)
Quarter: 2025Q2

REPORT INFORMATION
  Report Type: Spontaneous
  Country: US (occurrence: US)
  Receive Date: 20250521
  Receipt Date: 20250521
  Transmission Date: 20250717
  Serious: No
  Sender: CATALYST PHARMA
  Company Number: US-CATALYST PHARMACEUTICALS-US-CATA-25-00246

PATIENT
  Age: 14 Year
  Sex: Male
  Weight: 34 kg

DRUGS (3)
  1. AGAMREE [Suspect]
     Active Substance: VAMOROLONE
     Indication: Duchenne muscular dystrophy
     Dosage: 4.9 ML (196 MG) DAILY
     Route: 048
     Dates: start: 20240329
  2. ELEVIDYS [Concomitant]
     Active Substance: DELANDISTROGENE MOXEPARVOVEC-ROKL
     Indication: Product used for unknown indication
     Route: 065
     Dates: start: 20240904
  3. PREDNISONE [Concomitant]
     Active Substance: PREDNISONE
     Indication: Product used for unknown indication
     Dosage: 35 MG DAILY
     Route: 065
     Dates: start: 20240903

REACTIONS (2)
  - Troponin increased [Recovered/Resolved]
  - Ventricular hypertrophy [Unknown]

NARRATIVE: CASE EVENT DATE: 20240702
